FAERS Safety Report 7675119-2 (Version None)
Quarter: 2011Q3

REPORT INFORMATION
  Report Type: 
  Country: None (occurrence: None)
  Receive Date: 20110810
  Receipt Date: 20110803
  Transmission Date: 20111222
  Serious: Yes (Other)
  Sender: FDA-Public Use
  Company Number: JP-MERCK-1108USA00681

PATIENT
  Age: 63 Year
  Sex: Male

DRUGS (4)
  1. JANUVIA [Suspect]
     Indication: DIABETES MELLITUS
     Route: 048
     Dates: start: 20110706, end: 20110802
  2. WARFARIN SODIUM [Suspect]
     Route: 048
     Dates: start: 20070908
  3. LIPIDIL [Suspect]
     Indication: DYSLIPIDAEMIA
     Route: 048
     Dates: start: 20050329
  4. WARFARIN SODIUM [Suspect]
     Indication: ATRIAL FIBRILLATION
     Route: 048
     Dates: start: 20070908

REACTIONS (1)
  - LIVER DISORDER [None]
